FAERS Safety Report 16974299 (Version 1)
Quarter: 2019Q4

REPORT INFORMATION
  Report Type: Spontaneous
  Country: US (occurrence: US)
  Receive Date: 20191030
  Receipt Date: 20191030
  Transmission Date: 20200122
  Serious: Yes (Hospitalization, Other)
  Sender: FDA-Public Use
  Company Number: NVSC2019US016451

PATIENT
  Age: 66 Year
  Sex: Female

DRUGS (1)
  1. PAZOPANIB [Suspect]
     Active Substance: PAZOPANIB
     Indication: HUERTHLE CELL CARCINOMA
     Dosage: UNK
     Route: 048

REACTIONS (9)
  - Hypertension [Recovering/Resolving]
  - Posterior reversible encephalopathy syndrome [Recovering/Resolving]
  - Nausea [Unknown]
  - Headache [Unknown]
  - Encephalopathy [Recovering/Resolving]
  - Product use in unapproved indication [Unknown]
  - Blindness [Recovering/Resolving]
  - Postictal paralysis [Recovering/Resolving]
  - Status epilepticus [Recovering/Resolving]
